FAERS Safety Report 14116037 (Version 6)
Quarter: 2018Q3

REPORT INFORMATION
  Report Type: Report from Study
  Country: US (occurrence: US)
  Receive Date: 20171023
  Receipt Date: 20180921
  Transmission Date: 20181010
  Serious: Yes (Hospitalization, Other)
  Sender: FDA-Public Use
  Company Number: US-ACTELION-A-NJ2017-156173

PATIENT
  Age: 57 Year
  Sex: Female
  Weight: 103.86 kg

DRUGS (8)
  1. COUMADIN [Concomitant]
     Active Substance: WARFARIN SODIUM
  2. UPTRAVI [Suspect]
     Active Substance: SELEXIPAG
     Dosage: 600 MCG, BID
     Route: 048
  3. PRILOSEC [Concomitant]
     Active Substance: OMEPRAZOLE MAGNESIUM
     Dosage: 20 MG, QD
  4. UPTRAVI [Suspect]
     Active Substance: SELEXIPAG
     Indication: PULMONARY ARTERIAL HYPERTENSION
     Dosage: 400 MCG, BID
     Route: 048
  5. UPTRAVI [Suspect]
     Active Substance: SELEXIPAG
     Dosage: 1000 MG, BID
     Route: 048
  6. UPTRAVI [Suspect]
     Active Substance: SELEXIPAG
     Dosage: 1400 MCG, BID
     Route: 048
  7. ADEMPAS [Concomitant]
     Active Substance: RIOCIGUAT
  8. OPSUMIT [Suspect]
     Active Substance: MACITENTAN
     Indication: PULMONARY ARTERIAL HYPERTENSION
     Dosage: 10 MG, QD
     Route: 048
     Dates: start: 20151022, end: 20180330

REACTIONS (22)
  - Diarrhoea [Not Recovered/Not Resolved]
  - Headache [Unknown]
  - Dyspnoea exertional [Unknown]
  - Ascites [Unknown]
  - Cough [Unknown]
  - Vomiting [Unknown]
  - Decreased appetite [Unknown]
  - Chest pain [Unknown]
  - Gastrooesophageal reflux disease [Unknown]
  - Fatigue [Unknown]
  - Renal failure [Unknown]
  - Blood pressure decreased [Unknown]
  - Nausea [Unknown]
  - Weight increased [Unknown]
  - Abdominal discomfort [Unknown]
  - Oedema peripheral [Unknown]
  - Dyspnoea [Unknown]
  - Dizziness [Unknown]
  - Retching [Unknown]
  - Oedema [Unknown]
  - Fluid retention [Unknown]
  - Bedridden [Unknown]
